FAERS Safety Report 22029569 (Version 1)
Quarter: 2023Q1

REPORT INFORMATION
  Report Type: Spontaneous
  Country: US (occurrence: US)
  Receive Date: 20230223
  Receipt Date: 20230223
  Transmission Date: 20230417
  Serious: Yes (Hospitalization)
  Sender: FDA-Public Use
  Company Number: US-PFIZER INC-202300074017

PATIENT
  Age: 72 Year
  Sex: Female
  Weight: 80.74 kg

DRUGS (3)
  1. IBRANCE [Suspect]
     Active Substance: PALBOCICLIB
     Indication: Breast cancer female
     Dosage: 125 MG, CYCLIC (125MG ONCE A DAY FOR THREE WEEKS BY MOUTH, THEN OFF A WEEK)
     Route: 048
     Dates: start: 2021
  2. FULVESTRANT [Concomitant]
     Active Substance: FULVESTRANT
     Indication: Breast cancer metastatic
     Dosage: 250 MG (250MG, TWO SHOTS EVERY 28 DAYS/ OR ONCE A MONTH)
     Dates: start: 202009
  3. FULVESTRANT [Concomitant]
     Active Substance: FULVESTRANT
     Indication: Metastases to bone

REACTIONS (1)
  - Diverticulitis [Recovered/Resolved]
